FAERS Safety Report 4992604-2 (Version None)
Quarter: 2006Q1

REPORT INFORMATION
  Report Type: 
  Country: None (occurrence: None)
  Receive Date: 20060313
  Receipt Date: 20051122
  Transmission Date: 20060701
  Serious: No
  Sender: FDA-Public Use
  Company Number: 2005-BP-15200BP

PATIENT
  Age: 47 Year
  Sex: Female
  Weight: 112.9 kg

DRUGS (10)
  1. SPIRIVA [Suspect]
     Indication: CHRONIC OBSTRUCTIVE PULMONARY DISEASE
     Dosage: 18 MCG (18 MCG),IH
     Dates: start: 20050713
  2. PLAVIX [Concomitant]
  3. ASPIRIN [Concomitant]
  4. DILTIAZEM [Concomitant]
  5. ZETIA [Concomitant]
  6. GLIPIZIDE [Concomitant]
  7. ALTACE [Concomitant]
  8. ZOCOR [Concomitant]
  9. PREDNISONE TAB [Concomitant]
  10. HHN WITH ALBUTEROL [Concomitant]

REACTIONS (1)
  - ALOPECIA [None]
